FAERS Safety Report 15545501 (Version 1)
Quarter: 2018Q4

REPORT INFORMATION
  Report Type: Spontaneous
  Country: US (occurrence: US)
  Receive Date: 20181017
  Receipt Date: 20181017
  Transmission Date: 20190205
  Serious: Yes (Hospitalization)
  Sender: FDA-Public Use
  Company Number: None

PATIENT
  Age: 38 Year
  Weight: 127.01 kg

DRUGS (8)
  1. MONTELUKAST SODIUM, [Concomitant]
  2. NASACORT (NASAL SPRAY) [Concomitant]
  3. MONTELUKAST [Suspect]
     Active Substance: MONTELUKAST SODIUM
     Indication: RHINITIS ALLERGIC
     Dosage: ?          QUANTITY:1 PILL;?
     Route: 048
     Dates: start: 20180717, end: 20180823
  4. CELECOXIB (AS NEEDED) [Concomitant]
  5. SERTRALINE [Concomitant]
     Active Substance: SERTRALINE HYDROCHLORIDE
  6. SULFASALAZINE 500MG (X4 DAILY), [Concomitant]
  7. CETIRZINE [Concomitant]
  8. ZADITOR (EYE DROPS) [Concomitant]

REACTIONS (4)
  - Vertigo [None]
  - Nausea [None]
  - Fear of falling [None]
  - Dizziness [None]

NARRATIVE: CASE EVENT DATE: 20180817
